FAERS Safety Report 20365143 (Version 1)
Quarter: 2022Q1

REPORT INFORMATION
  Report Type: Report from Study
  Country: ES (occurrence: ES)
  Receive Date: 20220122
  Receipt Date: 20220122
  Transmission Date: 20220424
  Serious: Yes (Death, Hospitalization, Disabling, Other)
  Sender: FDA-Public Use
  Company Number: None

PATIENT
  Age: 74 Year
  Sex: Male
  Weight: 51.5 kg

DRUGS (5)
  1. MYCOPHENOLATE MOFETIL [Suspect]
     Active Substance: MYCOPHENOLATE MOFETIL
     Indication: Prophylaxis against transplant rejection
     Dosage: 1000 MG, QD
     Dates: start: 20190201, end: 20190205
  2. PREDNISONE [Suspect]
     Active Substance: PREDNISONE
     Indication: Prophylaxis against transplant rejection
     Dosage: 30 MG, QD
     Dates: start: 20190201
  3. THYMOGLOBULIN [Suspect]
     Active Substance: LAPINE T-LYMPHOCYTE IMMUNE GLOBULIN
     Indication: Prophylaxis against transplant rejection
     Dosage: 75 MG, QD
     Dates: start: 20190201, end: 20190205
  4. METHYLPREDNISOLONE [Suspect]
     Active Substance: METHYLPREDNISOLONE
     Indication: Prophylaxis against transplant rejection
     Dosage: 125 MG, QD
     Dates: start: 20190201, end: 20190202
  5. TACROLIMUS [Suspect]
     Active Substance: TACROLIMUS
     Indication: Prophylaxis against transplant rejection
     Dosage: 3 MG, QD
     Route: 048
     Dates: start: 20190315, end: 20190325

REACTIONS (2)
  - Diabetes mellitus [Not Recovered/Not Resolved]
  - Bronchopulmonary aspergillosis [Fatal]

NARRATIVE: CASE EVENT DATE: 20190220
